FAERS Safety Report 9397969 (Version 1)
Quarter: 2013Q3

REPORT INFORMATION
  Report Type: Spontaneous
  Country: GB (occurrence: None)
  Receive Date: 20130709
  Receipt Date: 20130709
  Transmission Date: 20140515
  Serious: Yes (Other)
  Sender: FDA-Public Use
  Company Number: GER/UKI/13/0030387

PATIENT
  Age: 73 Year
  Sex: Female

DRUGS (2)
  1. TERBINAFINE (TERBINAFINE) [Suspect]
     Indication: FUNGAL INFECTION
     Dosage: 1 DOSAGE FORMS, 1 IN 1 D
     Route: 048
     Dates: start: 20130529, end: 20130606
  2. ASPIRIN (ACETYLSALICYLIC ACID) [Concomitant]

REACTIONS (4)
  - Atrial fibrillation [None]
  - Drug interaction [None]
  - Diarrhoea [None]
  - Rash erythematous [None]
